FAERS Safety Report 22658997 (Version 1)
Quarter: 2023Q2

REPORT INFORMATION
  Report Type: Spontaneous
  Country: CN (occurrence: CN)
  Receive Date: 20230630
  Receipt Date: 20230630
  Transmission Date: 20230721
  Serious: Yes (Hospitalization, Other)
  Sender: FDA-Public Use
  Company Number: None

PATIENT
  Age: 40 Year
  Sex: Female

DRUGS (11)
  1. OLANZAPINE [Suspect]
     Active Substance: OLANZAPINE
     Indication: Schizophrenia
     Dosage: 5 MG, ONCE PER DAY (EVERY NIGHT)
     Route: 065
     Dates: start: 20170310, end: 20170313
  2. Granaduonium choline hydrobromide [Concomitant]
     Indication: Product used for unknown indication
     Dosage: 0.3 MG, 2 TIMES PER DAY
     Route: 065
     Dates: start: 20170308
  3. METOPROLOL SUCCINATE [Concomitant]
     Active Substance: METOPROLOL SUCCINATE
     Indication: Product used for unknown indication
     Dosage: 12.5 MG, 2 TIMES PER DAY
     Route: 065
     Dates: start: 20170306
  4. METOPROLOL SUCCINATE [Concomitant]
     Active Substance: METOPROLOL SUCCINATE
     Dosage: 25 MG, 2 TIMES PER DAY
     Dates: start: 20170308
  5. ALPRAZOLAM [Concomitant]
     Active Substance: ALPRAZOLAM
     Indication: Schizophrenia
     Dosage: 0.4 MG, ONCE PER DAY (EVERY NIGHT)
     Route: 065
     Dates: start: 20170228
  6. LORAZEPAM [Concomitant]
     Active Substance: LORAZEPAM
     Indication: Schizophrenia
     Dosage: 0.5 MG, 2 TIMES PER DAY
     Route: 065
     Dates: start: 20170306
  7. LORAZEPAM [Concomitant]
     Active Substance: LORAZEPAM
     Dosage: 1 MG, 2 TIMES PER DAY (TAKING IN THE MORNING AND NOON)
     Dates: start: 20170308
  8. LORAZEPAM [Concomitant]
     Active Substance: LORAZEPAM
     Dosage: 1.5 MG, ONCE PER DAY (EVERY NIGHT)
     Dates: start: 20170308
  9. TRIHEXYPHENIDYL [Concomitant]
     Active Substance: TRIHEXYPHENIDYL
     Indication: Extrapyramidal disorder
     Dosage: 0.3 MG,UNK
     Route: 030
     Dates: start: 20170222
  10. TRIHEXYPHENIDYL [Concomitant]
     Active Substance: TRIHEXYPHENIDYL
     Dosage: 20 MG, 2 TIMES PER DAY
  11. SCOPOLAMINE HYDROBROMIDE [HYOSCINE HYDROBROMIDE] [Concomitant]
     Indication: Extrapyramidal disorder
     Dosage: 0.3 MG, UNK
     Route: 030
     Dates: start: 20170222

REACTIONS (1)
  - Neuroleptic malignant syndrome [Recovered/Resolved]

NARRATIVE: CASE EVENT DATE: 20170313
